FAERS Safety Report 6811230-3 (Version None)
Quarter: 2010Q2

REPORT INFORMATION
  Report Type: 
  Country: None (occurrence: None)
  Receive Date: 20100629
  Receipt Date: 20100629
  Transmission Date: 20101027
  Serious: Yes (Death)
  Sender: FDA-Public Use
  Company Number: None

PATIENT
  Sex: Male
  Weight: 58 kg

DRUGS (2)
  1. CISPLATIN [Suspect]
     Dosage: 129 MG
     Dates: start: 20100616, end: 20100616
  2. TAXOTERE [Suspect]
     Dosage: 130 MG
     Dates: end: 20100616

REACTIONS (1)
  - DEATH [None]
